FAERS Safety Report 8377506-6 (Version None)
Quarter: 2012Q2

REPORT INFORMATION
  Report Type: 
  Country: None (occurrence: None)
  Receive Date: 20120522
  Receipt Date: 20120405
  Transmission Date: 20120825
  Serious: No
  Sender: FDA-Public Use
  Company Number: US-ASTRAZENECA-2012SE22888

PATIENT
  Age: 69 Year
  Sex: Female

DRUGS (1)
  1. OMEPRAZOLE [Suspect]
     Route: 048

REACTIONS (7)
  - DYSPEPSIA [None]
  - ABDOMINAL DISTENSION [None]
  - REGURGITATION [None]
  - FLATULENCE [None]
  - ERUCTATION [None]
  - GASTRIC DISORDER [None]
  - PRODUCTIVE COUGH [None]
